FAERS Safety Report 13484318 (Version 5)
Quarter: 2017Q3

REPORT INFORMATION
  Report Type: Spontaneous
  Country: US (occurrence: US)
  Receive Date: 20170425
  Receipt Date: 20170926
  Transmission Date: 20171127
  Serious: Yes (Other)
  Sender: FDA-Public Use
  Company Number: US-ASTRAZENECA-2017SE40925

PATIENT
  Age: 931 Month
  Sex: Male
  Weight: 95.3 kg

DRUGS (10)
  1. PROAIR HFA [Concomitant]
     Active Substance: ALBUTEROL SULFATE
     Dosage: AS REQUIRED
     Route: 055
  2. METOPROLOL SUCCINATE. [Concomitant]
     Active Substance: METOPROLOL SUCCINATE
     Indication: BLOOD PRESSURE ABNORMAL
     Dosage: 50.0MG UNKNOWN
     Route: 048
     Dates: start: 20170607
  3. GABAPENTIN. [Concomitant]
     Active Substance: GABAPENTIN
     Indication: LIMB DISCOMFORT
     Route: 048
  4. TUDORZA PRESSAIR [Suspect]
     Active Substance: ACLIDINIUM BROMIDE
     Indication: CHRONIC OBSTRUCTIVE PULMONARY DISEASE
     Route: 055
     Dates: start: 2015
  5. LISINOPRIL. [Concomitant]
     Active Substance: LISINOPRIL
     Indication: BLOOD PRESSURE ABNORMAL
     Route: 048
  6. LORAZEPAM. [Concomitant]
     Active Substance: LORAZEPAM
     Indication: ANXIETY
     Dosage: HALF OF 2MG FOUR TIMES A DAY
     Route: 048
  7. WATER PILL [Concomitant]
     Active Substance: UNSPECIFIED INGREDIENT
  8. METOPROLOL SUCCINATE. [Concomitant]
     Active Substance: METOPROLOL SUCCINATE
     Indication: BLOOD PRESSURE ABNORMAL
     Dosage: 25.0MG UNKNOWN
     Route: 048
     Dates: start: 2015
  9. MONTELUKAST [Concomitant]
     Active Substance: MONTELUKAST SODIUM
     Indication: DYSPNOEA
     Route: 048
  10. LORAZEPAM. [Concomitant]
     Active Substance: LORAZEPAM
     Indication: ANXIETY
     Dosage: 6 TO 10 MG PER DAY
     Route: 048

REACTIONS (12)
  - Heart rate decreased [Unknown]
  - Extrasystoles [Unknown]
  - Intentional product misuse [Unknown]
  - Hypotension [Unknown]
  - Circumstance or information capable of leading to medication error [Unknown]
  - Device malfunction [Unknown]
  - Basal cell carcinoma [Unknown]
  - Hernia [Unknown]
  - Blood cholesterol abnormal [Unknown]
  - Hypertension [Unknown]
  - Heart rate increased [Unknown]
  - Pollakiuria [Unknown]

NARRATIVE: CASE EVENT DATE: 201702
